FAERS Safety Report 9889733 (Version 2)
Quarter: 2014Q1

REPORT INFORMATION
  Report Type: Report from Study
  Country: CH (occurrence: CH)
  Receive Date: 20140211
  Receipt Date: 20140214
  Transmission Date: 20141002
  Serious: Yes (Hospitalization, Disabling)
  Sender: FDA-Public Use
  Company Number: CH-009507513-1402CHE002965

PATIENT
  Age: 69 Year
  Sex: Male

DRUGS (3)
  1. THERAPY UNSPECIFIED [Suspect]
     Indication: BRAIN OEDEMA
     Dosage: 4 MG, UNK
     Dates: start: 20140106
  2. BEVACIZUMAB [Suspect]
     Indication: BRAIN NEOPLASM MALIGNANT
     Dosage: 790 MG, UNK
     Route: 042
     Dates: start: 20131125
  3. FORTECORTIN [Suspect]
     Indication: BRAIN OEDEMA
     Dosage: 4 MG, UNK
     Dates: start: 20140106

REACTIONS (1)
  - Disability [Not Recovered/Not Resolved]
